FAERS Safety Report 6675248-6 (Version None)
Quarter: 2010Q2

REPORT INFORMATION
  Report Type: 
  Country: None (occurrence: None)
  Receive Date: 20100409
  Receipt Date: 20100203
  Transmission Date: 20101027
  Serious: No
  Sender: FDA-Public Use
  Company Number: A0648020A

PATIENT
  Age: 78 Year
  Sex: Female

DRUGS (4)
  1. TYKERB [Suspect]
     Indication: BREAST CANCER
     Dosage: 1250MG PER DAY
     Route: 048
     Dates: start: 20070330
  2. CAPECITABINE [Concomitant]
  3. HYZAAR [Concomitant]
  4. TOPROL-XL [Concomitant]

REACTIONS (6)
  - ERYTHEMA [None]
  - MALAISE [None]
  - PRODUCT QUALITY ISSUE [None]
  - PRURITUS [None]
  - RASH [None]
  - VISUAL IMPAIRMENT [None]
